FAERS Safety Report 4584258-4 (Version None)
Quarter: 2005Q1

REPORT INFORMATION
  Report Type: 
  Country: None (occurrence: None)
  Receive Date: 20050125
  Receipt Date: 20041026
  Transmission Date: 20050727
  Serious: No
  Sender: FDA-Public Use
  Company Number: USA041082381

PATIENT
  Sex: Female

DRUGS (1)
  1. FORTEO [Suspect]
     Dates: start: 20041018, end: 20041023

REACTIONS (6)
  - ANGINA PECTORIS [None]
  - DIZZINESS [None]
  - EMOTIONAL DISORDER [None]
  - FEELING ABNORMAL [None]
  - PALPITATIONS [None]
  - SEDATION [None]
